FAERS Safety Report 12060798 (Version 7)
Quarter: 2018Q4

REPORT INFORMATION
  Report Type: Spontaneous
  Country: JP (occurrence: JP)
  Receive Date: 20160210
  Receipt Date: 20181026
  Transmission Date: 20190204
  Serious: Yes (Death, Hospitalization, Other)
  Sender: FDA-Public Use
  Company Number: JP-PFIZER INC-2015421913

PATIENT
  Age: 43 Year
  Sex: Male
  Weight: 99 kg

DRUGS (5)
  1. FUROSEMIDE. [Concomitant]
     Active Substance: FUROSEMIDE
     Dosage: 40 MG, DAILY
  2. BOSULIF [Suspect]
     Active Substance: BOSUTINIB MONOHYDRATE
     Indication: CHRONIC MYELOID LEUKAEMIA
     Dosage: 300 MG, DAILY
     Route: 048
     Dates: start: 20151105, end: 20151118
  3. BOSULIF [Suspect]
     Active Substance: BOSUTINIB MONOHYDRATE
     Dosage: 400 MG, ONCE DAILY
     Route: 048
     Dates: start: 20151119, end: 20151202
  4. BOSULIF [Suspect]
     Active Substance: BOSUTINIB MONOHYDRATE
     Dosage: 500 MG, ONCE DAILY
     Route: 048
     Dates: start: 20151203, end: 20160201
  5. PREDONINE [Concomitant]
     Active Substance: PREDNISOLONE
     Indication: PLEURAL EFFUSION
     Dosage: 200 MG, DAILY
     Dates: start: 20160114

REACTIONS (10)
  - Hepatitis fulminant [Fatal]
  - Disseminated intravascular coagulation [Fatal]
  - Pulmonary alveolar haemorrhage [Fatal]
  - Respiratory failure [Fatal]
  - Diarrhoea [Recovered/Resolved]
  - Herpes virus infection [Fatal]
  - Pulmonary oedema [Fatal]
  - Varicella zoster virus infection [Unknown]
  - Dyspnoea [Unknown]
  - Multiple organ dysfunction syndrome [Fatal]

NARRATIVE: CASE EVENT DATE: 201511
